FAERS Safety Report 7526146-7 (Version None)
Quarter: 2011Q2

REPORT INFORMATION
  Report Type: 
  Country: None (occurrence: None)
  Receive Date: 20110606
  Receipt Date: 20110526
  Transmission Date: 20111010
  Serious: Yes (Hospitalization)
  Sender: FDA-Public Use
  Company Number: US-ASTRAZENECA-2011SE32991

PATIENT
  Age: 62 Year
  Sex: Female

DRUGS (2)
  1. SYMBICORT [Suspect]
     Route: 055
  2. NEXIUM [Suspect]
     Route: 048

REACTIONS (4)
  - RIB FRACTURE [None]
  - CONCUSSION [None]
  - RENAL STONE REMOVAL [None]
  - FALL [None]
